FAERS Safety Report 8623436-1 (Version None)
Quarter: 2012Q3

REPORT INFORMATION
  Report Type: 
  Country: None (occurrence: None)
  Receive Date: 20120827
  Receipt Date: 20120816
  Transmission Date: 20120928
  Serious: Yes (Other)
  Sender: FDA-Public Use
  Company Number: NO-BRISTOL-MYERS SQUIBB COMPANY-16812141

PATIENT
  Age: 63 Year
  Sex: Male

DRUGS (2)
  1. ZYPREXA [Suspect]
  2. ABILIFY [Suspect]
     Dosage: DOSE INCREASED TO 30 MG

REACTIONS (1)
  - DRUG LEVEL INCREASED [None]
